FAERS Safety Report 10686143 (Version 1)
Quarter: 2014Q4

REPORT INFORMATION
  Report Type: Spontaneous
  Country: US (occurrence: US)
  Receive Date: 20141231
  Receipt Date: 20141231
  Transmission Date: 20150529
  Serious: Yes (Hospitalization)
  Sender: FDA-Public Use
  Company Number: PHHY2014US168609

PATIENT
  Age: 28 Year
  Sex: Male

DRUGS (3)
  1. SULFAMETHOXAZOLE AND TRIMETHOPRIM [Suspect]
     Active Substance: SULFAMETHOXAZOLE\TRIMETHOPRIM
     Indication: URINARY TRACT INFECTION
     Route: 065
  2. ENOXAPARIN [Concomitant]
     Active Substance: ENOXAPARIN
     Indication: THROMBOSIS PROPHYLAXIS
     Route: 065
  3. PREDNISONE. [Concomitant]
     Active Substance: PREDNISONE
     Indication: PRODUCT USED FOR UNKNOWN INDICATION
     Route: 065

REACTIONS (18)
  - Lip exfoliation [Recovering/Resolving]
  - Hypoxia [Recovering/Resolving]
  - White blood cell count increased [Recovering/Resolving]
  - Gastrointestinal necrosis [Recovering/Resolving]
  - Ascites [Recovering/Resolving]
  - Epidermal necrosis [Recovering/Resolving]
  - Dermatitis [Recovering/Resolving]
  - Nikolsky^s sign [Recovering/Resolving]
  - Intestinal ischaemia [Recovering/Resolving]
  - Abdominal pain [Recovered/Resolved]
  - Toxic epidermal necrolysis [Recovering/Resolving]
  - Pyrexia [Recovering/Resolving]
  - Mouth ulceration [Recovering/Resolving]
  - Skin exfoliation [Recovering/Resolving]
  - Pneumatosis intestinalis [Recovering/Resolving]
  - Abdominal distension [Recovering/Resolving]
  - Blister [Recovering/Resolving]
  - Dyspnoea [Recovering/Resolving]
